FAERS Safety Report 4675413-3 (Version None)
Quarter: 2005Q2

REPORT INFORMATION
  Report Type: 
  Country: None (occurrence: None)
  Receive Date: 20050527
  Receipt Date: 20050228
  Transmission Date: 20051028
  Serious: No
  Sender: FDA-Public Use
  Company Number: US-BRISTOL-MYERS SQUIBB COMPANY-12879862

PATIENT
  Age: 32 Year
  Sex: Female
  Weight: 57 kg

DRUGS (2)
  1. ABILIFY [Suspect]
     Indication: BIPOLAR DISORDER
     Dates: start: 20050223, end: 20050201
  2. LAMICTAL [Concomitant]

REACTIONS (3)
  - FATIGUE [None]
  - PAIN IN EXTREMITY [None]
  - VISION BLURRED [None]
